FAERS Safety Report 9441633 (Version 1)
Quarter: 2013Q3

REPORT INFORMATION
  Report Type: Spontaneous
  Country: US (occurrence: US)
  Receive Date: 20130806
  Receipt Date: 20130806
  Transmission Date: 20140515
  Serious: No
  Sender: FDA-Public Use
  Company Number: US-B.I. PHARMACEUTICALS,INC./RIDGEFIELD-2013-BI-23262BP

PATIENT
  Age: 85 Year
  Sex: Female
  Weight: 86 kg

DRUGS (7)
  1. PRADAXA [Suspect]
     Dosage: 300 MG
     Route: 048
     Dates: start: 2011
  2. SERTRALINE [Concomitant]
     Dosage: 50 MG
     Route: 048
  3. OMEPRAZOLE [Concomitant]
     Indication: DYSPEPSIA
     Dosage: 20 MG
     Route: 048
  4. AMLODIPINE [Concomitant]
     Dosage: 5 MG
     Route: 048
  5. LEVOTHYROXINE [Concomitant]
     Indication: THYROIDECTOMY
     Dosage: 112 MG
     Route: 048
  6. SIMVASTATIN [Concomitant]
     Indication: THYROIDECTOMY
     Dosage: 40 MG
     Route: 048
  7. TRAMADOL [Concomitant]
     Indication: BACK PAIN
     Route: 048

REACTIONS (2)
  - Abdominal pain [Not Recovered/Not Resolved]
  - Dehydration [Not Recovered/Not Resolved]
